FAERS Safety Report 12571208 (Version 1)
Quarter: 2016Q3

REPORT INFORMATION
  Report Type: Spontaneous
  Country: US (occurrence: US)
  Receive Date: 20160719
  Receipt Date: 20160719
  Transmission Date: 20161109
  Serious: No
  Sender: FDA-Public Use
  Company Number: US-GALDERMA-US15008268

PATIENT
  Age: 73 Year
  Sex: Male

DRUGS (2)
  1. FINACEA (AZELAIC ACID) GEL [Concomitant]
     Indication: ROSACEA
     Dosage: 15%
     Route: 061
     Dates: start: 201511
  2. ORACEA [Suspect]
     Active Substance: DOXYCYCLINE
     Indication: ROSACEA
     Route: 048
     Dates: start: 201511

REACTIONS (1)
  - Blood glucose increased [Not Recovered/Not Resolved]

NARRATIVE: CASE EVENT DATE: 201511
